FAERS Safety Report 5269165-6 (Version None)
Quarter: 2007Q1

REPORT INFORMATION
  Report Type: 
  Country: None (occurrence: None)
  Receive Date: 20070319
  Receipt Date: 20070313
  Transmission Date: 20070707
  Serious: Yes (Hospitalization)
  Sender: FDA-Public Use
  Company Number: FR-ROXANE LABORATORIES, INC-2007-BP-03696RO

PATIENT
  Age: 59 Year
  Sex: Female

DRUGS (8)
  1. LITHIUM CARBONATE [Suspect]
     Indication: BIPOLAR DISORDER
     Dosage: 625 MG/DAY
     Route: 048
     Dates: start: 19980901, end: 20000801
  2. IMIPRAMINE [Suspect]
     Indication: BIPOLAR DISORDER
     Route: 048
     Dates: start: 19760101, end: 19880301
  3. ELAVIL [Suspect]
     Indication: BIPOLAR DISORDER
     Route: 048
     Dates: start: 19980901, end: 19990501
  4. ELAVIL [Suspect]
     Route: 048
     Dates: start: 19990501, end: 20000801
  5. PAROXETINE HCL [Suspect]
     Indication: BIPOLAR DISORDER
     Route: 048
     Dates: start: 19980901
  6. ENALAPRIL MALEATE [Concomitant]
     Indication: CARDIAC FAILURE CONGESTIVE
     Route: 048
     Dates: start: 19880301, end: 19910801
  7. FUROSEMIDE [Concomitant]
     Indication: CARDIAC FAILURE CONGESTIVE
     Route: 048
     Dates: start: 19880301, end: 19910801
  8. DIGOXIN [Concomitant]
     Indication: CARDIAC FAILURE CONGESTIVE
     Route: 048
     Dates: start: 19880301, end: 19910801

REACTIONS (1)
  - CARDIAC FAILURE CONGESTIVE [None]
